FAERS Safety Report 22352807 (Version 1)
Quarter: 2023Q2

REPORT INFORMATION
  Report Type: Report from Study
  Country: US (occurrence: US)
  Receive Date: 20230523
  Receipt Date: 20230523
  Transmission Date: 20230722
  Serious: Yes (Hospitalization, Other)
  Sender: FDA-Public Use
  Company Number: US-ABBVIE-5174586

PATIENT
  Sex: Male

DRUGS (1)
  1. HUMIRA [Suspect]
     Active Substance: ADALIMUMAB
     Indication: Crohn^s disease
     Dosage: FIRST ADMIN DATE: 05 JAN 2023??CITRATE FREE
     Route: 058

REACTIONS (2)
  - Abdominal pain upper [Recovering/Resolving]
  - Fistula [Unknown]

NARRATIVE: CASE EVENT DATE: 20230101
